FAERS Safety Report 14100670 (Version 1)
Quarter: 2017Q4

REPORT INFORMATION
  Report Type: Report from Study
  Country: None (occurrence: AU)
  Receive Date: 20171018
  Receipt Date: 20171018
  Transmission Date: 20180321
  Serious: Yes (Hospitalization)
  Sender: FDA-Public Use
  Company Number: AU-ABBVIE-17K-008-2129096-00

PATIENT
  Sex: Female

DRUGS (1)
  1. HUMIRA [Suspect]
     Active Substance: ADALIMUMAB
     Indication: HIDRADENITIS
     Route: 058
     Dates: start: 2017, end: 20170919

REACTIONS (13)
  - Blister [Recovering/Resolving]
  - Prescription drug used without a prescription [Unknown]
  - Feeling hot [Recovering/Resolving]
  - Cellulitis [Recovering/Resolving]
  - Pain in extremity [Recovering/Resolving]
  - Furuncle [Recovering/Resolving]
  - Skin discolouration [Recovering/Resolving]
  - Influenza like illness [Unknown]
  - Intentional product misuse [Unknown]
  - Hidradenitis [Not Recovered/Not Resolved]
  - Lymphoedema [Recovering/Resolving]
  - Scab [Recovering/Resolving]
  - Rash macular [Recovering/Resolving]

NARRATIVE: CASE EVENT DATE: 2017
